FAERS Safety Report 7458321-4 (Version None)
Quarter: 2011Q2

REPORT INFORMATION
  Report Type: 
  Country: None (occurrence: None)
  Receive Date: 20110504
  Receipt Date: 20110428
  Transmission Date: 20111010
  Serious: Yes (Other)
  Sender: FDA-Public Use
  Company Number: US-B.I. PHARMACEUTICALS,INC./RIDGEFIELD-2011-BP-10695BP

PATIENT
  Sex: Male

DRUGS (8)
  1. ATENOLOL [Concomitant]
     Dosage: 50 MG
  2. TERAZOSIN HCL [Concomitant]
     Dosage: 10 MG
  3. HUMULIN 70/30 [Concomitant]
     Indication: DIABETES MELLITUS
     Dates: start: 20010101
  4. RANITIDINE HCL [Concomitant]
  5. HYDROCHLOROTHIAZIDE [Concomitant]
     Dosage: 25 MG
  6. LOVASTATIN [Concomitant]
     Dosage: 40 MG
  7. PRADAXA [Suspect]
     Indication: ATRIAL FIBRILLATION
     Dosage: 300 MG
     Route: 048
     Dates: start: 20110324, end: 20110324
  8. FUROSEMIDE [Concomitant]
     Dosage: 40 MG

REACTIONS (1)
  - CARDIAC INFECTION [None]
